FAERS Safety Report 6520028-5 (Version None)
Quarter: 2009Q4

REPORT INFORMATION
  Report Type: 
  Country: None (occurrence: None)
  Receive Date: 20091229
  Receipt Date: 20091217
  Transmission Date: 20100525
  Serious: Yes (Death)
  Sender: FDA-Public Use
  Company Number: US-ROCHE-670928

PATIENT
  Sex: Male
  Weight: 71.7 kg

DRUGS (1)
  1. CAPECITABINE [Suspect]
     Indication: COLON CANCER STAGE III
     Dosage: X 14 DAYS
     Route: 048
     Dates: start: 20090930, end: 20091101

REACTIONS (7)
  - DEATH [None]
  - DEHYDRATION [None]
  - DIARRHOEA [None]
  - GASTROINTESTINAL TOXICITY [None]
  - INTESTINAL MASS [None]
  - INTESTINAL PERFORATION [None]
  - SMALL INTESTINAL OBSTRUCTION [None]
